FAERS Safety Report 8560626-0 (Version None)
Quarter: 2012Q3

REPORT INFORMATION
  Report Type: 
  Country: None (occurrence: None)
  Receive Date: 20120802
  Receipt Date: 20120719
  Transmission Date: 20120928
  Serious: No
  Sender: FDA-Public Use
  Company Number: US-ASTRAZENECA-2012SE43501

PATIENT
  Age: 66 Year
  Sex: Male

DRUGS (4)
  1. NEXIUM [Suspect]
     Route: 048
  2. PRILOSEC [Suspect]
     Route: 048
  3. PRILOSEC [Suspect]
     Route: 048
  4. PROTONIX [Concomitant]

REACTIONS (4)
  - BARRETT'S OESOPHAGUS [None]
  - INTENTIONAL DRUG MISUSE [None]
  - EROSIVE OESOPHAGITIS [None]
  - OESOPHAGEAL DISORDER [None]
